FAERS Safety Report 21870191 (Version 1)
Quarter: 2023Q1

REPORT INFORMATION
  Report Type: Report from Study
  Country: US (occurrence: US)
  Receive Date: 20230117
  Receipt Date: 20230117
  Transmission Date: 20230417
  Serious: No
  Sender: FDA-Public Use
  Company Number: US-ABBVIE-4238004

PATIENT
  Sex: Male

DRUGS (2)
  1. HUMIRA [Suspect]
     Active Substance: ADALIMUMAB
     Indication: Crohn^s disease
     Route: 058
     Dates: start: 2010
  2. HUMIRA [Suspect]
     Active Substance: ADALIMUMAB
     Indication: Colitis ulcerative

REACTIONS (5)
  - Condition aggravated [Unknown]
  - Gastroenteritis salmonella [Unknown]
  - Back pain [Unknown]
  - Arthralgia [Unknown]
  - Illness [Unknown]

NARRATIVE: CASE EVENT DATE: 20130101
